FAERS Safety Report 15180171 (Version 3)
Quarter: 2018Q3

REPORT INFORMATION
  Report Type: Spontaneous
  Country: US (occurrence: US)
  Receive Date: 20180723
  Receipt Date: 20180903
  Transmission Date: 20181010
  Serious: No
  Sender: FDA-Public Use
  Company Number: US-PFIZER INC-2018295809

PATIENT
  Age: 66 Year
  Sex: Male

DRUGS (1)
  1. EUCRISA [Suspect]
     Active Substance: CRISABOROLE
     Dosage: UNK, AS NEEDED (APPLY A THIN LAYER TWICE A DAY FOR 2 WEEKS AS NEEDED) (60 GRAM  TUBE)
     Route: 061
     Dates: start: 201806

REACTIONS (1)
  - Drug ineffective [Unknown]
